FAERS Safety Report 13613463 (Version 1)
Quarter: 2017Q2

REPORT INFORMATION
  Report Type: Report from Study
  Country: US (occurrence: US)
  Receive Date: 20170605
  Receipt Date: 20170605
  Transmission Date: 20170830
  Serious: Yes (Other)
  Sender: FDA-Public Use
  Company Number: US-VIFOR (INTERNATIONAL) INC.-VIT-2017-06294

PATIENT
  Sex: Male

DRUGS (18)
  1. WARFARIN SODIUM. [Concomitant]
     Active Substance: WARFARIN SODIUM
  2. METOPROLOL. [Concomitant]
     Active Substance: METOPROLOL
  3. OXYBUTYNIN [Concomitant]
     Active Substance: OXYBUTYNIN
  4. FINASTERIDE. [Concomitant]
     Active Substance: FINASTERIDE
  5. ROPINIROLE. [Concomitant]
     Active Substance: ROPINIROLE
  6. METOLAZONE. [Concomitant]
     Active Substance: METOLAZONE
  7. ASA [Concomitant]
     Active Substance: ASPIRIN
  8. OMEPRAZOLE. [Concomitant]
     Active Substance: OMEPRAZOLE
  9. VELTASSA [Suspect]
     Active Substance: PATIROMER
     Indication: HYPERKALAEMIA
     Route: 048
     Dates: start: 20160830
  10. LEVOTHYROXINE SODIUM. [Concomitant]
     Active Substance: LEVOTHYROXINE SODIUM
  11. BUMETANIDE. [Concomitant]
     Active Substance: BUMETANIDE
  12. SIMVASTATIN. [Concomitant]
     Active Substance: SIMVASTATIN
  13. AMLODIPINE [Concomitant]
     Active Substance: AMLODIPINE BESYLATE
  14. IRON [Concomitant]
     Active Substance: IRON
  15. LOSARTAN. [Concomitant]
     Active Substance: LOSARTAN
  16. HUMALOG [Concomitant]
     Active Substance: INSULIN LISPRO
  17. GABAPENTIN. [Concomitant]
     Active Substance: GABAPENTIN
  18. LANTUS [Concomitant]
     Active Substance: INSULIN GLARGINE

REACTIONS (1)
  - Dialysis [Unknown]
